FAERS Safety Report 4426788-1 (Version None)
Quarter: 2004Q3

REPORT INFORMATION
  Report Type: 
  Country: None (occurrence: None)
  Receive Date: 20040816
  Receipt Date: 20040804
  Transmission Date: 20050211
  Serious: Yes (Other)
  Sender: FDA-Public Use
  Company Number: IT-BRISTOL-MYERS SQUIBB COMPANY-12660338

PATIENT
  Age: 74 Year
  Sex: Female

DRUGS (5)
  1. CEFEPIME HCL [Suspect]
     Indication: PYREXIA
  2. CEFEPIME HCL [Suspect]
     Indication: BRONCHOPNEUMONIA
  3. CEFTRIAXONE [Concomitant]
     Indication: BRONCHOPNEUMONIA
  4. NETILMICIN SULFATE [Concomitant]
     Indication: BRONCHOPNEUMONIA
  5. NSAID [Concomitant]
     Indication: BRONCHOPNEUMONIA

REACTIONS (1)
  - STATUS EPILEPTICUS [None]
